FAERS Safety Report 7501686-5 (Version None)
Quarter: 2011Q2

REPORT INFORMATION
  Report Type: 
  Country: None (occurrence: None)
  Receive Date: 20110525
  Receipt Date: 20110511
  Transmission Date: 20111010
  Serious: Yes (Other)
  Sender: FDA-Public Use
  Company Number: US-MYLANLABS-2011S1010036

PATIENT
  Age: 20 Year
  Sex: Female

DRUGS (1)
  1. TACROLIMUS [Suspect]
     Route: 065

REACTIONS (2)
  - KIDNEY TRANSPLANT REJECTION [None]
  - THERAPEUTIC RESPONSE UNEXPECTED WITH DRUG SUBSTITUTION [None]
